FAERS Safety Report 19148090 (Version 1)
Quarter: 2021Q2

REPORT INFORMATION
  Report Type: Spontaneous
  Country: CA (occurrence: CA)
  Receive Date: 20210417
  Receipt Date: 20210417
  Transmission Date: 20210717
  Serious: Yes (Other)
  Sender: FDA-Public Use
  Company Number: CA-ROCHE-2811909

PATIENT
  Sex: Female

DRUGS (1)
  1. BEVACIZUMAB. [Suspect]
     Active Substance: BEVACIZUMAB
     Indication: HEREDITARY HAEMORRHAGIC TELANGIECTASIA
     Route: 042

REACTIONS (6)
  - Cough [Unknown]
  - Rash [Unknown]
  - Hypertension [Unknown]
  - Epistaxis [Unknown]
  - Off label use [Unknown]
  - Intentional product use issue [Unknown]
